FAERS Safety Report 5938295-5 (Version None)
Quarter: 2008Q4

REPORT INFORMATION
  Report Type: 
  Country: None (occurrence: None)
  Receive Date: 20081031
  Receipt Date: 20081017
  Transmission Date: 20090506
  Serious: Yes (Hospitalization)
  Sender: FDA-Public Use
  Company Number: JP-MERCK-0809USA00991

PATIENT
  Age: 43 Year
  Sex: Male

DRUGS (7)
  1. ZETIA [Suspect]
     Indication: HYPERCHOLESTEROLAEMIA
     Route: 048
     Dates: start: 20080721, end: 20080820
  2. ASPIRIN [Concomitant]
     Route: 065
     Dates: start: 20061024
  3. CILOSTAZOL [Concomitant]
     Route: 065
     Dates: start: 20061024
  4. SARPOGRELATE HYDROCHLORIDE [Concomitant]
     Route: 065
     Dates: start: 20061024
  5. NATEGLINIDE [Concomitant]
     Route: 065
     Dates: start: 20061024
  6. METFORMIN HYDROCHLORIDE [Concomitant]
     Route: 065
     Dates: start: 20061024
  7. LIVALO [Concomitant]
     Route: 065
     Dates: start: 20061024

REACTIONS (1)
  - HEPATIC FUNCTION ABNORMAL [None]
